FAERS Safety Report 10048322 (Version 1)
Quarter: 2014Q1

REPORT INFORMATION
  Report Type: Spontaneous
  Country: CA (occurrence: CA)
  Receive Date: 20140331
  Receipt Date: 20140331
  Transmission Date: 20141002
  Serious: Yes (Other)
  Sender: FDA-Public Use
  Company Number: CA-GLAXOSMITHKLINE-A1066807A

PATIENT
  Age: 72 Year
  Sex: Female
  Weight: 113.6 kg

DRUGS (6)
  1. CLAVULIN [Suspect]
     Indication: PRODUCT USED FOR UNKNOWN INDICATION
     Dosage: 500MG THREE TIMES PER DAY
     Route: 048
  2. CEFUROXIME [Suspect]
     Indication: PRODUCT USED FOR UNKNOWN INDICATION
     Dosage: 500MG THREE TIMES PER DAY
     Route: 048
  3. DILANTIN [Concomitant]
  4. DIOVAN [Concomitant]
  5. DOMPERIDONE [Concomitant]
  6. MULTIVITAMIN [Concomitant]

REACTIONS (5)
  - Erythema [Unknown]
  - Feeling hot [Unknown]
  - Infection [Unknown]
  - Pain in extremity [Unknown]
  - Pruritus [Unknown]
